FAERS Safety Report 13489460 (Version 1)
Quarter: 2017Q2

REPORT INFORMATION
  Report Type: Spontaneous
  Country: US (occurrence: US)
  Receive Date: 20170426
  Receipt Date: 20170426
  Transmission Date: 20170830
  Serious: No
  Sender: FDA-Public Use
  Company Number: None

PATIENT
  Age: 46 Year
  Sex: Male

DRUGS (11)
  1. SILDENAFIL. [Concomitant]
     Active Substance: SILDENAFIL
  2. IBUPROFEN. [Concomitant]
     Active Substance: IBUPROFEN
  3. AMPYRA [Suspect]
     Active Substance: DALFAMPRIDINE
     Indication: MULTIPLE SCLEROSIS
     Route: 048
     Dates: start: 201010
  4. VITAMIN D3 [Concomitant]
     Active Substance: CHOLECALCIFEROL
  5. VITAMIN D2 [Concomitant]
     Active Substance: ERGOCALCIFEROL
  6. METHYLPREDNISOLONE. [Concomitant]
     Active Substance: METHYLPREDNISOLONE
  7. BACLOFEN. [Concomitant]
     Active Substance: BACLOFEN
  8. NORCO [Concomitant]
     Active Substance: ACETAMINOPHEN\HYDROCODONE BITARTRATE
  9. GABAPENTIN. [Concomitant]
     Active Substance: GABAPENTIN
  10. PAPAVORINE [Concomitant]
  11. NORTTRIPTYLINE [Concomitant]

REACTIONS (8)
  - Alanine aminotransferase increased [None]
  - Haemoglobin decreased [None]
  - Haematocrit decreased [None]
  - Blood 25-hydroxycholecalciferol decreased [None]
  - B-lymphocyte count decreased [None]
  - Neutrophil count decreased [None]
  - Laboratory test abnormal [None]
  - CD8 lymphocytes decreased [None]

NARRATIVE: CASE EVENT DATE: 20170401
